FAERS Safety Report 23980448 (Version 3)
Quarter: 2024Q3

REPORT INFORMATION
  Report Type: Spontaneous
  Country: JP (occurrence: JP)
  Receive Date: 20240617
  Receipt Date: 20240723
  Transmission Date: 20241016
  Serious: Yes (Other)
  Sender: TAKEDA
  Company Number: JP-TAKEDA-2024TJP008631

PATIENT
  Age: 40 Year
  Sex: Female

DRUGS (7)
  1. TRINTELLIX [Suspect]
     Active Substance: VORTIOXETINE HYDROBROMIDE
     Indication: Product used for unknown indication
     Dosage: 10 MILLIGRAM
     Route: 048
  2. TRINTELLIX [Suspect]
     Active Substance: VORTIOXETINE HYDROBROMIDE
     Dosage: 20 MILLIGRAM
     Route: 048
  3. LEMBOREXANT [Concomitant]
     Active Substance: LEMBOREXANT
     Dosage: UNK
     Route: 065
  4. ARIPIPRAZOLE [Concomitant]
     Active Substance: ARIPIPRAZOLE
     Dosage: UNK
     Route: 065
  5. BREXPIPRAZOLE [Concomitant]
     Active Substance: BREXPIPRAZOLE
     Dosage: UNK
     Route: 065
  6. QUETIAPINE FUMARATE [Concomitant]
     Active Substance: QUETIAPINE FUMARATE
     Dosage: UNK
     Route: 065
  7. HERBALS [Concomitant]
     Active Substance: HERBALS
     Dosage: UNK
     Route: 048

REACTIONS (5)
  - Mental impairment [Unknown]
  - Nausea [Recovering/Resolving]
  - Malaise [Recovering/Resolving]
  - Somnolence [Recovering/Resolving]
  - Product dose omission in error [Unknown]
